FAERS Safety Report 10151615 (Version 3)
Quarter: 2014Q3

REPORT INFORMATION
  Report Type: Spontaneous
  Country: JP (occurrence: JP)
  Receive Date: 20140505
  Receipt Date: 20140728
  Transmission Date: 20150326
  Serious: Yes (Other)
  Sender: FDA-Public Use
  Company Number: JP-ROCHE-1393737

PATIENT
  Age: 44 Year
  Sex: Female

DRUGS (2)
  1. LUCENTIS [Suspect]
     Active Substance: RANIBIZUMAB
     Indication: AGE-RELATED MACULAR DEGENERATION
     Dosage: FIRST INJECTION
     Route: 050
     Dates: start: 20140224
  2. LUCENTIS [Suspect]
     Active Substance: RANIBIZUMAB
     Dosage: SECOND INJECTON
     Route: 050
     Dates: start: 20140331

REACTIONS (8)
  - Visual field defect [Recovering/Resolving]
  - Eye pain [Recovered/Resolved]
  - Visual impairment [Unknown]
  - Retinogram abnormal [Unknown]
  - Corneal erosion [Unknown]
  - Visual acuity reduced [Recovering/Resolving]
  - Optical coherence tomography abnormal [Recovering/Resolving]
  - Retinal injury [Unknown]

NARRATIVE: CASE EVENT DATE: 20140324
